FAERS Safety Report 25247373 (Version 1)
Quarter: 2025Q2

REPORT INFORMATION
  Report Type: Spontaneous
  Country: IT (occurrence: IT)
  Receive Date: 20250428
  Receipt Date: 20250428
  Transmission Date: 20250716
  Serious: Yes (Life-Threatening, Hospitalization)
  Sender: PFIZER
  Company Number: None

PATIENT
  Age: 27 Year
  Sex: Female
  Weight: 60 kg

DRUGS (2)
  1. DEPO-MEDROL [Suspect]
     Active Substance: METHYLPREDNISOLONE ACETATE
     Indication: Arthropathy
     Route: 014
     Dates: start: 20250415, end: 20250415
  2. DALBAVANCIN [Concomitant]
     Active Substance: DALBAVANCIN
     Indication: Soft tissue infection
     Dosage: 1500 MG DAY 1 AND DAY 8
     Route: 042
     Dates: start: 20250227, end: 20250304

REACTIONS (1)
  - Anaphylactic shock [Recovered/Resolved]

NARRATIVE: CASE EVENT DATE: 20250415
